FAERS Safety Report 5776998-6 (Version None)
Quarter: 2008Q2

REPORT INFORMATION
  Report Type: 
  Country: None (occurrence: None)
  Receive Date: 20080618
  Receipt Date: 20080429
  Transmission Date: 20081010
  Serious: No
  Sender: FDA-Public Use
  Company Number: US-ASTRAZENECA-2008UW08485

PATIENT
  Age: 87 Year
  Sex: Female

DRUGS (3)
  1. SYMBICORT [Suspect]
     Indication: CHRONIC OBSTRUCTIVE PULMONARY DISEASE
     Dosage: 160/4.5 UG BID
     Route: 055
     Dates: start: 20080101
  2. XANAX [Concomitant]
  3. DIGITEK [Concomitant]

REACTIONS (4)
  - MUSCLE SPASTICITY [None]
  - MYALGIA [None]
  - PAIN [None]
  - PRURITUS [None]
